FAERS Safety Report 12004434 (Version 1)
Quarter: 2016Q1

REPORT INFORMATION
  Report Type: Spontaneous
  Country: US (occurrence: US)
  Receive Date: 20160204
  Receipt Date: 20160204
  Transmission Date: 20160526
  Serious: No
  Sender: FDA-Public Use
  Company Number: GXBR2015US002300

PATIENT
  Age: 65 Year
  Sex: Female

DRUGS (1)
  1. LISINOPRIL TABLETS, USP [Suspect]
     Active Substance: LISINOPRIL
     Indication: BLOOD PRESSURE MEASUREMENT
     Dosage: 40 MG, QD
     Route: 048

REACTIONS (1)
  - Blood pressure inadequately controlled [Not Recovered/Not Resolved]

NARRATIVE: CASE EVENT DATE: 201508
